FAERS Safety Report 6891868-8 (Version None)
Quarter: 2010Q3

REPORT INFORMATION
  Report Type: 
  Country: None (occurrence: None)
  Receive Date: 20100731
  Receipt Date: 20071105
  Transmission Date: 20110219
  Serious: No
  Sender: FDA-Public Use
  Company Number: US-PFIZER INC-2007094644

PATIENT
  Sex: Male
  Weight: 94.35 kg

DRUGS (12)
  1. NEURONTIN [Suspect]
     Indication: NEURALGIA
     Dates: start: 20070901, end: 20070901
  2. NEURONTIN [Suspect]
     Indication: DIABETIC NEUROPATHY
  3. ATENOLOL [Concomitant]
  4. LISINOPRIL [Concomitant]
  5. ALLEGRA [Concomitant]
  6. ZOCOR [Concomitant]
  7. MAXZIDE [Concomitant]
  8. GLUCOPHAGE [Concomitant]
  9. ZANTAC [Concomitant]
  10. TRAMADOL HYDROCHLORIDE [Concomitant]
  11. ACETAMINOPHEN [Concomitant]
  12. VITAMINS [Concomitant]

REACTIONS (1)
  - DRUG INEFFECTIVE [None]
